FAERS Safety Report 5953631-1 (Version None)
Quarter: 2008Q4

REPORT INFORMATION
  Report Type: 
  Country: None (occurrence: None)
  Receive Date: 20081114
  Receipt Date: 20081031
  Transmission Date: 20090506
  Serious: Yes (Other)
  Sender: FDA-Public Use
  Company Number: B0545124A

PATIENT
  Age: 38 Year
  Sex: Female

DRUGS (9)
  1. TRIZIVIR [Suspect]
     Indication: HIV INFECTION
     Route: 048
     Dates: start: 20050119, end: 20050125
  2. TELZIR [Suspect]
     Indication: HIV INFECTION
     Route: 048
     Dates: start: 20050204
  3. NORVIR [Suspect]
     Indication: HIV INFECTION
     Route: 048
     Dates: start: 20050311
  4. TRUVADA [Suspect]
     Indication: HIV INFECTION
     Route: 065
     Dates: start: 20060510
  5. EPIVIR [Concomitant]
     Indication: HIV INFECTION
     Route: 048
     Dates: start: 20050311
  6. VIREAD [Concomitant]
     Indication: HIV INFECTION
     Route: 048
     Dates: start: 20050204
  7. KALETRA [Concomitant]
     Indication: HIV INFECTION
     Route: 048
     Dates: start: 20050204
  8. FUZEON [Concomitant]
     Indication: HIV INFECTION
     Dates: start: 20050311
  9. BACTRIM [Concomitant]
     Indication: DRUG USE FOR UNKNOWN INDICATION
     Route: 048
     Dates: start: 20050427

REACTIONS (2)
  - DRUG RASH WITH EOSINOPHILIA AND SYSTEMIC SYMPTOMS [None]
  - DRUG RESISTANCE [None]
